FAERS Safety Report 19440835 (Version 1)
Quarter: 2021Q2

REPORT INFORMATION
  Report Type: Spontaneous
  Country: US (occurrence: US)
  Receive Date: 20210621
  Receipt Date: 20210621
  Transmission Date: 20210717
  Serious: Yes (Other)
  Sender: FDA-Public Use
  Company Number: US-SA-2021SA203089

PATIENT
  Sex: Female

DRUGS (12)
  1. HYDROCODONE [Concomitant]
     Active Substance: HYDROCODONE
  2. NYSTATIN. [Concomitant]
     Active Substance: NYSTATIN
  3. LORTAB ASA [Concomitant]
     Active Substance: ASPIRIN\HYDROCODONE BITARTRATE
  4. CEPHALEXIN AMEL [Concomitant]
     Active Substance: CEPHALEXIN
  5. LORAZEPAM. [Concomitant]
     Active Substance: LORAZEPAM
  6. METHYLPREDNISOLONE. [Concomitant]
     Active Substance: METHYLPREDNISOLONE
  7. TRAMADOL HCL [Concomitant]
     Active Substance: TRAMADOL HYDROCHLORIDE
  8. MIRTAZAPINE. [Concomitant]
     Active Substance: MIRTAZAPINE
  9. HYDROXYZINE HCL [Concomitant]
     Active Substance: HYDROXYZINE HYDROCHLORIDE
  10. PREDNISONE. [Concomitant]
     Active Substance: PREDNISONE
  11. DUPIXENT [Suspect]
     Active Substance: DUPILUMAB
     Indication: ASTHMA
     Dosage: 300 MG, QOW
     Route: 058
  12. FUROSEMIDE. [Concomitant]
     Active Substance: FUROSEMIDE

REACTIONS (4)
  - Oesophageal candidiasis [Unknown]
  - Unevaluable event [Unknown]
  - Product dose omission issue [Unknown]
  - Oral candidiasis [Unknown]
